FAERS Safety Report 7915323-9 (Version None)
Quarter: 2011Q4

REPORT INFORMATION
  Report Type: 
  Country: None (occurrence: None)
  Receive Date: 20111115
  Receipt Date: 20111103
  Transmission Date: 20120403
  Serious: Yes (Hospitalization, Other)
  Sender: FDA-Public Use
  Company Number: PHHY2011CA93595

PATIENT
  Sex: Female

DRUGS (2)
  1. TASIGNA [Suspect]
     Indication: CHRONIC MYELOID LEUKAEMIA
     Dosage: 200 MG, BID
     Route: 048
     Dates: start: 20110516
  2. TASIGNA [Suspect]
     Dosage: 300 MG, BID
     Route: 048
     Dates: end: 20110610

REACTIONS (2)
  - TACHYCARDIA [None]
  - CARDIAC DISORDER [None]
